FAERS Safety Report 19211978 (Version 1)
Quarter: 2021Q2

REPORT INFORMATION
  Report Type: Spontaneous
  Country: US (occurrence: US)
  Receive Date: 20210504
  Receipt Date: 20210504
  Transmission Date: 20210717
  Serious: No
  Sender: FDA-Public Use
  Company Number: None

PATIENT
  Age: 73 Year
  Sex: Female
  Weight: 60.75 kg

DRUGS (8)
  1. METAMUCIL [Concomitant]
     Active Substance: PLANTAGO SEED
  2. ROSUVASTATIN. [Concomitant]
     Active Substance: ROSUVASTATIN
  3. IBRANCE [Suspect]
     Active Substance: PALBOCICLIB
     Indication: BREAST CANCER
     Dosage: ?          OTHER FREQUENCY:DAILY FOR 21/28D;?
     Route: 048
     Dates: start: 20210318, end: 20210504
  4. MULTIVITAMIN [Concomitant]
     Active Substance: VITAMINS
  5. PROBIOTIC [Concomitant]
     Active Substance: PROBIOTICS NOS
  6. LOSARTAN. [Concomitant]
     Active Substance: LOSARTAN
  7. ZOLPIDEM [Concomitant]
     Active Substance: ZOLPIDEM TARTRATE
  8. STOOL SOFTENER (DOCUSATE) [Concomitant]
     Active Substance: DOCUSATE

REACTIONS (1)
  - Drug ineffective [None]

NARRATIVE: CASE EVENT DATE: 20210504
